FAERS Safety Report 6679455-8 (Version None)
Quarter: 2010Q2

REPORT INFORMATION
  Report Type: 
  Country: None (occurrence: None)
  Receive Date: 20100413
  Receipt Date: 20100406
  Transmission Date: 20101027
  Serious: Yes (Other)
  Sender: FDA-Public Use
  Company Number: FR-JNJFOC-20091203106

PATIENT
  Age: 17 Year
  Sex: Male
  Weight: 40 kg

DRUGS (7)
  1. REMICADE [Suspect]
     Indication: CROHN'S DISEASE
     Dosage: 160 MG (WEIGHT INCREASED)
     Route: 042
  2. REMICADE [Suspect]
     Dosage: AT 40 KG
     Route: 042
  3. REMICADE [Suspect]
     Route: 042
  4. UVESTEROL [Concomitant]
  5. VITAMIN K TAB [Concomitant]
  6. TPN [Concomitant]
  7. CERNEVIT-12 [Concomitant]

REACTIONS (5)
  - ASTHMATIC CRISIS [None]
  - HYPERSENSITIVITY [None]
  - RASH [None]
  - URTICARIA [None]
  - VIRAL INFECTION [None]
